FAERS Safety Report 9377397 (Version 3)
Quarter: 2013Q3

REPORT INFORMATION
  Report Type: Report from Study
  Country: AU (occurrence: AU)
  Receive Date: 20130701
  Receipt Date: 20130731
  Transmission Date: 20140515
  Serious: Yes (Other)
  Sender: FDA-Public Use
  Company Number: PHHY2012AU073146

PATIENT
  Age: 72 Year
  Sex: Female

DRUGS (4)
  1. EXJADE [Suspect]
     Indication: PAROXYSMAL NOCTURNAL HAEMOGLOBINURIA
     Dosage: 1000 MG,IN MORNING
     Route: 048
     Dates: start: 20120530
  2. EXJADE [Suspect]
     Dosage: 1000 MG PER DAY IN EVENING
     Route: 048
     Dates: start: 20120530
  3. EXJADE [Suspect]
     Dosage: 1500 MG PER DAY IN EVENING
     Route: 048
  4. SOLIRIS [Concomitant]
     Indication: PAROXYSMAL NOCTURNAL HAEMOGLOBINURIA
     Dosage: 900 MG, UNK
     Dates: start: 201105

REACTIONS (11)
  - Erythema [Unknown]
  - Weight increased [Recovering/Resolving]
  - Skin haemorrhage [Unknown]
  - Local swelling [Recovering/Resolving]
  - Joint swelling [Recovering/Resolving]
  - Feeling abnormal [Unknown]
  - Nausea [Unknown]
  - Haemoglobin decreased [Unknown]
  - Dyspnoea [Unknown]
  - Dizziness [Unknown]
  - Malaise [Unknown]
